FAERS Safety Report 7272414-6 (Version None)
Quarter: 2011Q1

REPORT INFORMATION
  Report Type: 
  Country: None (occurrence: None)
  Receive Date: 20110203
  Receipt Date: 20101213
  Transmission Date: 20110831
  Serious: Yes (Other)
  Sender: FDA-Public Use
  Company Number: US-BAYER-201040373NA

PATIENT
  Sex: Female
  Weight: 53.968 kg

DRUGS (1)
  1. MIRENA [Suspect]
     Indication: CONTRACEPTION
     Dosage: 8 WEEKS POST PARTUM
     Route: 015
     Dates: start: 20101027, end: 20101027

REACTIONS (1)
  - DEVICE DISLOCATION [None]
